FAERS Safety Report 12268228 (Version 1)
Quarter: 2016Q2

REPORT INFORMATION
  Report Type: Spontaneous
  Country: US (occurrence: US)
  Receive Date: 20160414
  Receipt Date: 20160414
  Transmission Date: 20160815
  Serious: No
  Sender: FDA-Public Use
  Company Number: US-009507513-1604USA000321

PATIENT
  Age: 23 Year
  Sex: Female
  Weight: 55.78 kg

DRUGS (3)
  1. NUVARING [Suspect]
     Active Substance: ETHINYL ESTRADIOL\ETONOGESTREL
     Indication: MENSTRUATION IRREGULAR
     Dosage: UNK, 3 WEEKS IN, 1 WEEK OUT
     Route: 067
     Dates: start: 20160327
  2. AUGMENTIN [Concomitant]
     Active Substance: AMOXICILLIN\CLAVULANATE POTASSIUM
     Dosage: UNK
  3. CLINDAMYCIN [Concomitant]
     Active Substance: CLINDAMYCIN\CLINDAMYCIN PHOSPHATE
     Dosage: UNK

REACTIONS (3)
  - Product use issue [Unknown]
  - Oral pain [Unknown]
  - Acne cystic [Unknown]

NARRATIVE: CASE EVENT DATE: 20160327
